FAERS Safety Report 5790831-8 (Version None)
Quarter: 2008Q2

REPORT INFORMATION
  Report Type: 
  Country: None (occurrence: None)
  Receive Date: 20080626
  Receipt Date: 20080507
  Transmission Date: 20081010
  Serious: No
  Sender: FDA-Public Use
  Company Number: A0726707A

PATIENT
  Age: 36 Year
  Sex: Female
  Weight: 77 kg

DRUGS (2)
  1. ALLI [Suspect]
     Dates: start: 20080410
  2. LEVOXYL [Concomitant]

REACTIONS (5)
  - ANXIETY [None]
  - MENORRHAGIA [None]
  - MENSTRUATION IRREGULAR [None]
  - POLYMENORRHOEA [None]
  - STRESS [None]
